FAERS Safety Report 25219713 (Version 1)
Quarter: 2025Q2

REPORT INFORMATION
  Report Type: Report from Study
  Country: DE (occurrence: DE)
  Receive Date: 20250421
  Receipt Date: 20250421
  Transmission Date: 20250716
  Serious: Yes (Other)
  Sender: ACCORD
  Company Number: DE-EMA-DD-20250314-7482829-083229

PATIENT
  Age: 29 Year
  Sex: Male

DRUGS (2)
  1. BUSULFAN [Suspect]
     Active Substance: BUSULFAN
     Indication: Bone marrow conditioning regimen
  2. DEFERASIROX [Concomitant]
     Active Substance: DEFERASIROX
     Indication: Iron overload
     Dosage: 22 MILLIGRAM/KILOGRAM, QD

REACTIONS (2)
  - Hypothalamo-pituitary disorder [Unknown]
  - Endocrine disorder [Unknown]
